FAERS Safety Report 8304780-4 (Version None)
Quarter: 2012Q2

REPORT INFORMATION
  Report Type: 
  Country: None (occurrence: None)
  Receive Date: 20120423
  Receipt Date: 20120418
  Transmission Date: 20120825
  Serious: Yes (Life-Threatening)
  Sender: FDA-Public Use
  Company Number: FR-ASTRAZENECA-2012SE25720

PATIENT
  Age: 15755 Day
  Sex: Female

DRUGS (5)
  1. SUFENTANYL MYLAN [Suspect]
     Indication: ANAESTHESIA
     Route: 042
     Dates: start: 20120307, end: 20120307
  2. ETOMIDATE [Suspect]
     Indication: ANAESTHESIA
     Route: 042
     Dates: start: 20120307, end: 20120307
  3. DIPRIVAN [Suspect]
     Indication: ANAESTHESIA
     Route: 042
     Dates: start: 20120307, end: 20120307
  4. NIMBEX [Suspect]
     Indication: ANAESTHESIA
     Route: 042
     Dates: start: 20120307, end: 20120307
  5. CELOCURINE [Suspect]
     Indication: ANAESTHESIA
     Route: 042
     Dates: start: 20120307, end: 20120307

REACTIONS (1)
  - ANAPHYLACTIC SHOCK [None]
